FAERS Safety Report 20397116 (Version 2)
Quarter: 2022Q1

REPORT INFORMATION
  Report Type: Spontaneous
  Country: US (occurrence: US)
  Receive Date: 20220131
  Receipt Date: 20220201
  Transmission Date: 20220424
  Serious: No
  Sender: FDA-Public Use
  Company Number: US-ABBVIE-21K-163-3853173-00

PATIENT
  Age: 34 Year
  Sex: Female
  Weight: 52.210 kg

DRUGS (1)
  1. HUMIRA [Suspect]
     Active Substance: ADALIMUMAB
     Indication: Colitis ulcerative
     Route: 058
     Dates: start: 202007

REACTIONS (4)
  - Anosmia [Recovering/Resolving]
  - Ageusia [Recovered/Resolved]
  - Suspected COVID-19 [Recovering/Resolving]
  - Pyrexia [Recovered/Resolved]

NARRATIVE: CASE EVENT DATE: 20201231
